FAERS Safety Report 25340178 (Version 2)
Quarter: 2025Q3

REPORT INFORMATION
  Report Type: Report from Study
  Country: US (occurrence: US)
  Receive Date: 20250521
  Receipt Date: 20250826
  Transmission Date: 20251021
  Serious: Yes (Hospitalization)
  Sender: TAKEDA
  Company Number: US-TAKEDA-2024TUS114130

PATIENT
  Sex: Female

DRUGS (3)
  1. LANADELUMAB [Suspect]
     Active Substance: LANADELUMAB
     Indication: Hereditary angioedema
     Dosage: 300 MILLIGRAM, 2/WEEK
     Dates: start: 20240110
  2. LANADELUMAB [Suspect]
     Active Substance: LANADELUMAB
     Dosage: 300 MILLIGRAM, Q2WEEKS
  3. LANADELUMAB [Suspect]
     Active Substance: LANADELUMAB

REACTIONS (3)
  - Joint swelling [Not Recovered/Not Resolved]
  - Seasonal allergy [Unknown]
  - Hereditary angioedema [Unknown]
